FAERS Safety Report 9193362 (Version 1)
Quarter: 2013Q1

REPORT INFORMATION
  Report Type: Spontaneous
  Country: US (occurrence: None)
  Receive Date: 20120703
  Receipt Date: 20120703
  Transmission Date: 20140127
  Serious: No
  Sender: FDA-Public Use
  Company Number: PHEN2012US008505

PATIENT
  Age: 42 Year
  Sex: Female

DRUGS (1)
  1. GILENYA (FTY)CAPSULE,0.5MG [Suspect]
     Indication: MULTIPLE SCLEROSIS
     Route: 048
     Dates: start: 20120418

REACTIONS (3)
  - Sensation of heaviness [None]
  - Hypoaesthesia [None]
  - Muscular weakness [None]
